APPROVED DRUG PRODUCT: ROCALTROL
Active Ingredient: CALCITRIOL
Strength: 1MCG/ML
Dosage Form/Route: SOLUTION;ORAL
Application: N021068 | Product #001 | TE Code: AA
Applicant: ESJAY PHARMA LLC
Approved: Nov 20, 1998 | RLD: Yes | RS: Yes | Type: RX